FAERS Safety Report 7310176-4 (Version None)
Quarter: 2011Q1

REPORT INFORMATION
  Report Type: 
  Country: None (occurrence: None)
  Receive Date: 20110224
  Receipt Date: 20110215
  Transmission Date: 20110831
  Serious: No
  Sender: FDA-Public Use
  Company Number: US-PFIZER INC-2010148033

PATIENT
  Sex: Female

DRUGS (1)
  1. SOMAVERT [Suspect]
     Dosage: UNK

REACTIONS (6)
  - INJECTION SITE ERYTHEMA [None]
  - HYPERSENSITIVITY [None]
  - INJECTION SITE SWELLING [None]
  - COUGH [None]
  - URTICARIA [None]
  - DRUG HYPERSENSITIVITY [None]
